FAERS Safety Report 4485929-0 (Version None)
Quarter: 2004Q4

REPORT INFORMATION
  Report Type: 
  Country: None (occurrence: None)
  Receive Date: 20041026
  Receipt Date: 20041014
  Transmission Date: 20050328
  Serious: Yes (Other)
  Sender: FDA-Public Use
  Company Number: 2004078610

PATIENT
  Age: 47 Year
  Sex: Female
  Weight: 77.1115 kg

DRUGS (9)
  1. BEN-GAY ULTRA (CAMPHOR, MENTHOL, METHYL SALICYLATE) [Suspect]
     Indication: BACK PAIN
     Dosage: ENOUGH TO COVER THE LOWER BACK ONCE, TOPICAL
     Route: 061
     Dates: start: 20041009, end: 20041009
  2. MAXIDEX (BENZALKONIUM CHLORIDE, DEXAMETHASONE, PHENYLMERCURIC NITRATE) [Concomitant]
  3. VERAPAMIL HCL [Concomitant]
  4. DICYCLOVERINE HYDROCHLORIDE (DICYCLOVERINE HYDROCHLORIDE) [Concomitant]
  5. PANTOPRAZOLE (PANTOPRAZOLE) [Concomitant]
  6. DIAZEPAM [Concomitant]
  7. VICODIN [Concomitant]
  8. BECLOMETHASONE DIPROPIONATE [Concomitant]
  9. SALBUTAMOL (SALBUTAMOL) [Concomitant]

REACTIONS (5)
  - APPLICATION SITE REACTION [None]
  - APPLICATION SITE VESICLES [None]
  - BURNS SECOND DEGREE [None]
  - BURNS THIRD DEGREE [None]
  - DRUG INEFFECTIVE [None]
